FAERS Safety Report 5700397-6 (Version None)
Quarter: 2008Q2

REPORT INFORMATION
  Report Type: 
  Country: None (occurrence: None)
  Receive Date: 20080408
  Receipt Date: 20080408
  Transmission Date: 20081010
  Serious: No
  Sender: FDA-Public Use
  Company Number: None

PATIENT
  Age: 29 Year
  Sex: Male
  Weight: 83.9154 kg

DRUGS (1)
  1. PROAIR HFA [Suspect]
     Indication: ASTHMA
     Dosage: 90 MCG AS NEEDED INHAL
     Route: 055
     Dates: start: 20071222, end: 20080407

REACTIONS (2)
  - DEVICE MALFUNCTION [None]
  - DRUG INEFFECTIVE [None]
